FAERS Safety Report 25048709 (Version 3)
Quarter: 2025Q1

REPORT INFORMATION
  Report Type: Spontaneous
  Country: US (occurrence: US)
  Receive Date: 20250307
  Receipt Date: 20250314
  Transmission Date: 20250408
  Serious: No
  Sender: Haleon PLC
  Company Number: US-HALEON-2231718

PATIENT
  Age: 22 Year

DRUGS (1)
  1. NICORETTE WHITE ICE MINT [Suspect]
     Active Substance: NICOTINE
     Indication: Smoking cessation therapy
     Dates: start: 20250302, end: 20250306

REACTIONS (2)
  - Skin discolouration [Unknown]
  - Expired product administered [Unknown]

NARRATIVE: CASE EVENT DATE: 20250302
